FAERS Safety Report 4704539-0 (Version None)
Quarter: 2005Q2

REPORT INFORMATION
  Report Type: 
  Country: None (occurrence: None)
  Receive Date: 20050630
  Receipt Date: 20040906
  Transmission Date: 20051028
  Serious: Yes (Congenital Anomaly)
  Sender: FDA-Public Use
  Company Number: GB-ABBOTT-04P-167-0272674-00

PATIENT
  Sex: Male

DRUGS (1)
  1. EPILIM [Suspect]
     Indication: DRUG EXPOSURE DURING PREGNANCY

REACTIONS (5)
  - AGGRESSION [None]
  - AUTISM [None]
  - DYSLEXIA [None]
  - FOETAL VALPROATE SYNDROME [None]
  - INTESTINAL FUNCTIONAL DISORDER [None]
